FAERS Safety Report 16013730 (Version 5)
Quarter: 2024Q3

REPORT INFORMATION
  Report Type: Spontaneous
  Country: US (occurrence: US)
  Receive Date: 20190227
  Receipt Date: 20240703
  Transmission Date: 20241016
  Serious: No
  Sender: SANOFI AVENTIS
  Company Number: US-SA-2019SA055725

PATIENT
  Age: 51 Year
  Sex: Female

DRUGS (37)
  1. DUPIXENT [Suspect]
     Active Substance: DUPILUMAB
     Indication: Dermatitis atopic
     Dosage: 300 MG, QOW
     Route: 058
     Dates: start: 20180130
  2. DUPIXENT [Suspect]
     Active Substance: DUPILUMAB
     Indication: Psoriasis
  3. ATENOLOL [Concomitant]
     Active Substance: ATENOLOL
  4. ATENOLOL [Concomitant]
     Active Substance: ATENOLOL
  5. HYDROCHLOROTHIAZIDE [Concomitant]
     Active Substance: HYDROCHLOROTHIAZIDE
  6. METFORMIN [Concomitant]
     Active Substance: METFORMIN HYDROCHLORIDE
  7. METFORMIN [Concomitant]
     Active Substance: METFORMIN HYDROCHLORIDE
  8. SIMVASTATIN [Concomitant]
     Active Substance: SIMVASTATIN
  9. SIMVASTATIN [Concomitant]
     Active Substance: SIMVASTATIN
  10. HERBALS\TURMERIC [Concomitant]
     Active Substance: HERBALS\TURMERIC
  11. CHOLECALCIFEROL [Concomitant]
     Active Substance: CHOLECALCIFEROL
  12. FLUTICASONE [Concomitant]
     Active Substance: FLUTICASONE
  13. FLUTICASONE [Concomitant]
     Active Substance: FLUTICASONE
  14. IBU [Concomitant]
     Active Substance: IBUPROFEN
  15. VITAMINS NOS [Concomitant]
     Active Substance: VITAMINS
  16. VITAMINS NOS [Concomitant]
     Active Substance: VITAMINS
  17. ALBUTEROL SULFATE [Concomitant]
     Active Substance: ALBUTEROL SULFATE
  18. AMLODIPINE [Concomitant]
     Active Substance: AMLODIPINE BESYLATE
  19. BENZONATATE [Concomitant]
     Active Substance: BENZONATATE
  20. BIOTIN [Concomitant]
     Active Substance: BIOTIN
  21. CALCIUM [Concomitant]
     Active Substance: CALCIUM
  22. CLOBETASOL [Concomitant]
     Active Substance: CLOBETASOL
  23. CLOTRIMAZOLE [Concomitant]
     Active Substance: CLOTRIMAZOLE
  24. DOCUSATE SOD [Concomitant]
  25. FLUCONAZOLE [Concomitant]
     Active Substance: FLUCONAZOLE
  26. FLUOCINONIDE [Concomitant]
     Active Substance: FLUOCINONIDE
  27. ACETAMINOPHEN\HYDROCODONE [Concomitant]
     Active Substance: ACETAMINOPHEN\HYDROCODONE
  28. IBUPROFEN [Concomitant]
     Active Substance: IBUPROFEN
  29. IPRATROPIUM [Concomitant]
     Active Substance: IPRATROPIUM
  30. OMEPRAZOLE [Concomitant]
     Active Substance: OMEPRAZOLE
  31. TYLENOL [Concomitant]
     Active Substance: ACETAMINOPHEN
  32. ACETAMINOPHEN [Concomitant]
     Active Substance: ACETAMINOPHEN
  33. ACYCLOVIR [Concomitant]
     Active Substance: ACYCLOVIR
  34. CYCLOBENZAPRINE [Concomitant]
     Active Substance: CYCLOBENZAPRINE
  35. HYDROCHLOROTHIAZIDE [Concomitant]
     Active Substance: HYDROCHLOROTHIAZIDE
  36. HYDROCORT [HYDROCORTISONE] [Concomitant]
  37. VITAMIN D NOS [Concomitant]
     Active Substance: CHOLECALCIFEROL\ERGOCALCIFEROL

REACTIONS (8)
  - Dyspnoea [Not Recovered/Not Resolved]
  - Nasopharyngitis [Recovered/Resolved]
  - Sleep disorder [Not Recovered/Not Resolved]
  - Eczema [Not Recovered/Not Resolved]
  - Product use issue [Not Recovered/Not Resolved]
  - Therapeutic response decreased [Not Recovered/Not Resolved]
  - Drug ineffective [Unknown]
  - Product use in unapproved indication [Unknown]

NARRATIVE: CASE EVENT DATE: 20190101
